FAERS Safety Report 4537635-1 (Version None)
Quarter: 2004Q4

REPORT INFORMATION
  Report Type: 
  Country: None (occurrence: None)
  Receive Date: 20041208
  Receipt Date: 20040611
  Transmission Date: 20050328
  Serious: Yes (Other)
  Sender: FDA-Public Use
  Company Number: 138895USA

PATIENT
  Age: 76 Year
  Sex: Female
  Weight: 81.1939 kg

DRUGS (5)
  1. DIPYRIDAMOLE [Suspect]
     Indication: CORONARY ARTERY ATHEROSCLEROSIS
     Dates: start: 20040511
  2. ATACAND [Concomitant]
  3. HYDROCHLOROTHIAZIDE [Concomitant]
  4. ASPIRIN [Concomitant]
  5. LIPITOR [Concomitant]

REACTIONS (5)
  - BLOOD PRESSURE DECREASED [None]
  - DIZZINESS [None]
  - HEART RATE DECREASED [None]
  - LOSS OF CONSCIOUSNESS [None]
  - PANIC REACTION [None]
